FAERS Safety Report 5470993-2 (Version None)
Quarter: 2007Q3

REPORT INFORMATION
  Report Type: 
  Country: None (occurrence: None)
  Receive Date: 20070928
  Receipt Date: 20070925
  Transmission Date: 20080115
  Serious: Yes (Death, Life-Threatening, Hospitalization)
  Sender: FDA-Public Use
  Company Number: A0683951A

PATIENT
  Age: 41 Year
  Sex: Female

DRUGS (4)
  1. ADVAIR DISKUS 100/50 [Suspect]
     Indication: ASTHMA
     Dosage: 1PCT TWICE PER DAY
     Route: 055
  2. SPIRIVA [Concomitant]
  3. SINGULAIR [Concomitant]
  4. CLARITIN [Concomitant]

REACTIONS (1)
  - MYOCARDIAL INFARCTION [None]
